FAERS Safety Report 15375971 (Version 2)
Quarter: 2019Q2

REPORT INFORMATION
  Report Type: Spontaneous
  Country: US (occurrence: US)
  Receive Date: 20180912
  Receipt Date: 20190612
  Transmission Date: 20190711
  Serious: No
  Sender: FDA-Public Use
  Company Number: US-PFIZER INC-2018278787

PATIENT
  Age: 84 Year
  Sex: Female
  Weight: 63 kg

DRUGS (9)
  1. GAS-X [Concomitant]
     Active Substance: DIMETHICONE
     Dosage: UNK
     Dates: start: 201810, end: 201810
  2. ONDANSETRON [Concomitant]
     Active Substance: ONDANSETRON
     Indication: NAUSEA
     Dosage: 8 MG, AS NEEDED (TABLET DISSOLVES IN MOUTH EVERY 8 HOURS AS NEEDED)
     Route: 048
     Dates: start: 201808, end: 201808
  3. TRIAMTERENE + HCTZ [Concomitant]
     Active Substance: HYDROCHLOROTHIAZIDE\TRIAMTERENE
     Indication: HYPERTENSION
     Dosage: 1 DF, 2X/DAY [HYDROCHLOROTHIAZIDE: 37.5MG]/[TRIAMTERENE: 5.25MG]
     Route: 048
  4. LOSARTAN. [Concomitant]
     Active Substance: LOSARTAN
     Indication: HYPERTENSION
     Dosage: 25 MG, 1X/DAY
     Route: 048
     Dates: start: 20180810
  5. OMEPRAZOLE. [Concomitant]
     Active Substance: OMEPRAZOLE
     Indication: ULCER
     Dosage: 40 MG, 1X/DAY
     Route: 048
     Dates: start: 20180820
  6. XALKORI [Suspect]
     Active Substance: CRIZOTINIB
     Indication: ADENOCARCINOMA
     Dosage: 200 MG, 2X/DAY
     Route: 048
     Dates: start: 20180604, end: 201810
  7. AMITRIPTYLINE [Concomitant]
     Active Substance: AMITRIPTYLINE
     Indication: CLAUSTROPHOBIA
     Dosage: 1 DF, 1X/DAY (ON EMPTY STOMACH AT NIGHT)
     Dates: start: 201802
  8. XALKORI [Suspect]
     Active Substance: CRIZOTINIB
     Indication: NEOPLASM MALIGNANT
  9. XALKORI [Suspect]
     Active Substance: CRIZOTINIB
     Indication: BRONCHIAL CARCINOMA
     Dosage: 200 MG, UNK

REACTIONS (3)
  - Glomerular filtration rate decreased [Unknown]
  - Red blood cell count decreased [Unknown]
  - White blood cell count decreased [Unknown]
